FAERS Safety Report 17580855 (Version 18)
Quarter: 2022Q2

REPORT INFORMATION
  Report Type: Spontaneous
  Country: GB (occurrence: GB)
  Receive Date: 20200325
  Receipt Date: 20220419
  Transmission Date: 20220721
  Serious: Yes (Hospitalization, Other)
  Sender: FDA-Public Use
  Company Number: GB-002147023-NVSC2020GB056009

PATIENT
  Age: 68 Year
  Sex: Male

DRUGS (58)
  1. IVABRADINE [Suspect]
     Active Substance: IVABRADINE
     Indication: Product used for unknown indication
     Dosage: 2.5 MILLIGRAM, BID
     Route: 065
  2. IVABRADINE [Suspect]
     Active Substance: IVABRADINE
     Dosage: 2 DOSAGE FORM, BID
     Route: 065
  3. IVABRADINE [Suspect]
     Active Substance: IVABRADINE
     Dosage: 2.5 MILLIGRAM, BID
     Route: 065
  4. IVABRADINE [Suspect]
     Active Substance: IVABRADINE
     Dosage: UNK UNK, BID
     Route: 065
  5. IVABRADINE [Suspect]
     Active Substance: IVABRADINE
     Dosage: UNK UNK, QD
     Route: 065
  6. IVABRADINE [Suspect]
     Active Substance: IVABRADINE
     Dosage: 5 MILLIGRAM, QD
     Route: 065
  7. IVABRADINE [Suspect]
     Active Substance: IVABRADINE
     Dosage: 5 MILLIGRAM
     Route: 065
  8. IVABRADINE [Suspect]
     Active Substance: IVABRADINE
     Dosage: 5 MILLIGRAM, QD
  9. EPLERENONE [Suspect]
     Active Substance: EPLERENONE
     Indication: Product used for unknown indication
     Dosage: 25 MG (GARGEL, TABLET FOR SOLUTION)
     Route: 065
  10. EPLERENONE [Suspect]
     Active Substance: EPLERENONE
     Dosage: UNK
     Route: 065
  11. BISOPROLOL [Suspect]
     Active Substance: BISOPROLOL
     Indication: Product used for unknown indication
     Dosage: 7.5 MILLIGRAM
     Route: 065
  12. BISOPROLOL [Suspect]
     Active Substance: BISOPROLOL
     Dosage: UNK, QD (UNK UNK, QD)
     Route: 065
  13. BISOPROLOL [Suspect]
     Active Substance: BISOPROLOL
     Dosage: UNK
     Route: 065
  14. BISOPROLOL [Suspect]
     Active Substance: BISOPROLOL
     Dosage: 25 MILLIGRAM, QD
  15. BISOPROLOL [Suspect]
     Active Substance: BISOPROLOL
     Dosage: 2.5 MILLIGRAM, BID
  16. BISOPROLOL [Suspect]
     Active Substance: BISOPROLOL
     Dosage: 2.5 MILLIGRAM
  17. BISOPROLOL [Suspect]
     Active Substance: BISOPROLOL
     Dosage: UNK UNK, BID
  18. BISOPROLOL [Suspect]
     Active Substance: BISOPROLOL
     Dosage: 7.5 MILLIGRAM
     Route: 065
  19. BISOPROLOL [Suspect]
     Active Substance: BISOPROLOL
     Dosage: 25 MILLIGRAM, QID
     Route: 065
  20. BISOPROLOL [Suspect]
     Active Substance: BISOPROLOL
     Dosage: 2.5 DOSAGE FORM
  21. BISOPROLOL [Suspect]
     Active Substance: BISOPROLOL
     Dosage: 5 MILLIGRAM, QD
     Route: 065
  22. BISOPROLOL [Suspect]
     Active Substance: BISOPROLOL
     Dosage: 1 DOSAGE FORM
     Route: 065
  23. BISOPROLOL [Suspect]
     Active Substance: BISOPROLOL
     Dosage: UNK UNK, BID
  24. RAMIPRIL [Suspect]
     Active Substance: RAMIPRIL
     Indication: Product used for unknown indication
     Dosage: 2.5 MILLIGRAM, BID
     Route: 065
  25. RAMIPRIL [Suspect]
     Active Substance: RAMIPRIL
     Dosage: UNK
     Route: 065
  26. RAMIPRIL [Suspect]
     Active Substance: RAMIPRIL
     Dosage: 2.5 MILLIGRAM, BID
     Route: 065
  27. RAMIPRIL [Suspect]
     Active Substance: RAMIPRIL
     Dosage: 2.5 MILLIGRAM
     Route: 065
  28. RAMIPRIL [Suspect]
     Active Substance: RAMIPRIL
     Dosage: 5 MILLIGRAM, QD
     Route: 065
  29. RAMIPRIL [Suspect]
     Active Substance: RAMIPRIL
     Dosage: 2.5 MILLIGRAM
     Route: 065
  30. VALSARTAN [Suspect]
     Active Substance: VALSARTAN
     Indication: Product used for unknown indication
     Dosage: 2 DOSAGE FORM, BID (2 DF (24/26 MG), BID)
  31. VALSARTAN [Suspect]
     Active Substance: VALSARTAN
     Dosage: 2 DOSAGE FORM, BID (2 DF (24/26 MG), BID)
  32. SACUBITRIL\VALSARTAN [Suspect]
     Active Substance: SACUBITRIL\VALSARTAN
     Indication: Product used for unknown indication
     Dosage: 1 DF, BID 49/51 MG (ONCE IN 12 HOURS)
     Route: 065
  33. SACUBITRIL\VALSARTAN [Suspect]
     Active Substance: SACUBITRIL\VALSARTAN
     Dosage: 1 DF, BID 24/26 MG (ONCE IN 12 HOURS)
     Route: 065
  34. SACUBITRIL\VALSARTAN [Suspect]
     Active Substance: SACUBITRIL\VALSARTAN
     Dosage: 2 DF, 1 DF, BID 49/51 MG (ONCE IN 12 HOURS)
     Route: 065
  35. SACUBITRIL\VALSARTAN [Suspect]
     Active Substance: SACUBITRIL\VALSARTAN
     Dosage: 2 DF, DF, BID 24/26 MG (ONCE IN 12 HOURS) (DENTAL GEL)
     Route: 065
  36. SACUBITRIL\VALSARTAN [Suspect]
     Active Substance: SACUBITRIL\VALSARTAN
     Dosage: UNK, BID (2 DF, 1 DF, 49/51 MG, TWO TIMES A DAY)
     Route: 065
  37. SACUBITRIL\VALSARTAN [Suspect]
     Active Substance: SACUBITRIL\VALSARTAN
     Dosage: 2 DOSAGE FORM (24/26 MG) ONCE IN 12 HOURS, BID
     Route: 065
  38. SACUBITRIL\VALSARTAN [Suspect]
     Active Substance: SACUBITRIL\VALSARTAN
     Dosage: 2 DOSAGE FORM, BID (49/51 MG, BID)
  39. SACUBITRIL\VALSARTAN [Suspect]
     Active Substance: SACUBITRIL\VALSARTAN
     Dosage: 4 DOSAGE FORM, QD, (4 DOSAGE FORM, ONCE A DAY)
     Route: 065
  40. SACUBITRIL\VALSARTAN [Suspect]
     Active Substance: SACUBITRIL\VALSARTAN
     Dosage: 2 DOSAGE FORM, QD (2 DF, QD)
  41. ISOSORBIDE MONONITRATE [Suspect]
     Active Substance: ISOSORBIDE MONONITRATE
     Indication: Product used for unknown indication
     Dosage: 25 MILLIGRAM, QD
     Route: 065
  42. ISOSORBIDE MONONITRATE [Suspect]
     Active Substance: ISOSORBIDE MONONITRATE
     Dosage: UNK
  43. ISOSORBIDE MONONITRATE [Suspect]
     Active Substance: ISOSORBIDE MONONITRATE
     Dosage: 25 MILLIGRAM
     Route: 065
  44. ISOSORBIDE MONONITRATE [Concomitant]
     Active Substance: ISOSORBIDE MONONITRATE
     Indication: Product used for unknown indication
     Dosage: 25 MILLIGRAM, QD
     Route: 065
  45. ISOSORBIDE MONONITRATE [Concomitant]
     Active Substance: ISOSORBIDE MONONITRATE
     Dosage: UNK
  46. METOLAZONA [Concomitant]
     Indication: Product used for unknown indication
     Dosage: UNK, Q3W, (2.5 OT, Q3W)
     Route: 065
  47. METOLAZONA [Concomitant]
     Dosage: 2.5 MG, Q3W (EVERY 3 WEEKS)
     Route: 065
  48. METOLAZONA [Concomitant]
     Dosage: 3 DOSAGE FORM, QW (3 DF, 1X/WEEK (2.5 OT, Q3W) )
     Route: 065
  49. METOLAZONA [Concomitant]
     Dosage: 2.5 MG, Q3W (EVERY 3 WEEKS)
     Route: 065
  50. BUMETANIDE [Concomitant]
     Active Substance: BUMETANIDE
     Indication: Product used for unknown indication
     Dosage: UNK, QD, (3 OT, BID)
     Route: 065
  51. BUMETANIDE [Concomitant]
     Active Substance: BUMETANIDE
     Dosage: 1 DF (2/1 MG)
  52. BUMETANIDE [Concomitant]
     Active Substance: BUMETANIDE
     Dosage: 1 DF (3/2 MG)
  53. BUMETANIDE [Concomitant]
     Active Substance: BUMETANIDE
     Dosage: 3 MG, BID (ONCE IN 12 HOURS)
  54. BUMETANIDE [Concomitant]
     Active Substance: BUMETANIDE
     Dosage: 1 DOSAGE FORM
     Route: 065
  55. BUMETANIDE [Concomitant]
     Active Substance: BUMETANIDE
     Dosage: 2.5 MILLIGRAM, Q3W
     Route: 065
  56. BUMETANIDE [Concomitant]
     Active Substance: BUMETANIDE
     Dosage: 3 OT, BID;
     Route: 065
  57. BUMETANIDE [Concomitant]
     Active Substance: BUMETANIDE
     Dosage: 1 DOSAGE FORM, UNKNOWN;
     Route: 065
  58. BUMETANIDE [Concomitant]
     Active Substance: BUMETANIDE
     Dosage: UNK

REACTIONS (9)
  - Glomerular filtration rate decreased [Unknown]
  - Oedema peripheral [Unknown]
  - Venous pressure jugular increased [Unknown]
  - Sinus bradycardia [Unknown]
  - Blood potassium increased [Unknown]
  - Dizziness [Unknown]
  - Blood pressure systolic decreased [Unknown]
  - Venous pressure jugular decreased [Unknown]
  - Blood pressure decreased [Unknown]

NARRATIVE: CASE EVENT DATE: 20200101
